FAERS Safety Report 14111673 (Version 3)
Quarter: 2018Q2

REPORT INFORMATION
  Report Type: Spontaneous
  Country: FR (occurrence: FR)
  Receive Date: 20171020
  Receipt Date: 20180516
  Transmission Date: 20180711
  Serious: Yes (Other)
  Sender: FDA-Public Use
  Company Number: FR-MERCK KGAA-2030957

PATIENT
  Age: 37 Year
  Sex: Female
  Weight: 47 kg

DRUGS (1)
  1. NOVOTHYROX [Suspect]
     Active Substance: LEVOTHYROXINE SODIUM
     Indication: AUTOIMMUNE THYROIDITIS
     Route: 048
     Dates: start: 201704

REACTIONS (19)
  - Depression [Not Recovered/Not Resolved]
  - Muscle spasms [Recovered/Resolved]
  - Emotional distress [None]
  - Asthenia [Not Recovered/Not Resolved]
  - Blood thyroid stimulating hormone normal [Unknown]
  - Arthralgia [None]
  - Social avoidant behaviour [None]
  - Fall [None]
  - Fatigue [None]
  - Insomnia [None]
  - Dizziness [Recovered/Resolved]
  - Irritability [None]
  - Dysstasia [None]
  - Psychiatric symptom [None]
  - Limb discomfort [Recovered/Resolved]
  - Migraine [Recovered/Resolved]
  - Loss of personal independence in daily activities [None]
  - Alopecia [Recovered/Resolved]
  - Nausea [Recovered/Resolved]

NARRATIVE: CASE EVENT DATE: 20170601
